FAERS Safety Report 14838500 (Version 3)
Quarter: 2023Q2

REPORT INFORMATION
  Report Type: Spontaneous
  Country: US (occurrence: None)
  Receive Date: 20180502
  Receipt Date: 20230505
  Transmission Date: 20230722
  Serious: Yes (Other)
  Sender: FDA-Public Use
  Company Number: 2018SE51833

PATIENT
  Age: 15234 Day
  Sex: Male
  Weight: 169.6 kg

DRUGS (51)
  1. PRILOSEC OTC [Suspect]
     Active Substance: OMEPRAZOLE MAGNESIUM
     Indication: Gastrooesophageal reflux disease
     Route: 048
     Dates: start: 2014, end: 2016
  2. PRILOSEC OTC [Suspect]
     Active Substance: OMEPRAZOLE MAGNESIUM
     Indication: Gastrooesophageal reflux disease
     Route: 048
     Dates: start: 20141027
  3. PRILOSEC [Suspect]
     Active Substance: OMEPRAZOLE MAGNESIUM
     Indication: Gastrooesophageal reflux disease
     Route: 048
     Dates: start: 2014, end: 2016
  4. PRILOSEC [Suspect]
     Active Substance: OMEPRAZOLE MAGNESIUM
     Indication: Gastrooesophageal reflux disease
     Route: 048
  5. PRILOSEC [Suspect]
     Active Substance: OMEPRAZOLE MAGNESIUM
     Indication: Gastrooesophageal reflux disease
     Dosage: GENERIC
     Dates: start: 2015, end: 2016
  6. LOSARTAN [Concomitant]
     Active Substance: LOSARTAN
     Indication: Blood pressure measurement
     Dates: start: 2015
  7. CARVEDILOL [Concomitant]
     Active Substance: CARVEDILOL
     Indication: Blood pressure measurement
     Dates: start: 2015
  8. NIFEDIPINE [Concomitant]
     Active Substance: NIFEDIPINE
     Indication: Blood pressure measurement
     Dates: start: 2014
  9. FUROSEMIDE [Concomitant]
     Active Substance: FUROSEMIDE
     Dates: start: 2015
  10. FENOFIBRATE [Concomitant]
     Active Substance: FENOFIBRATE
     Indication: Blood cholesterol
  11. TYLENOL [Concomitant]
     Active Substance: ACETAMINOPHEN
     Indication: Pain
  12. CINNAMON [Concomitant]
     Active Substance: CINNAMON
     Indication: Diabetes mellitus
     Dates: start: 2015, end: 2021
  13. ROSUVASTATIN [Concomitant]
     Active Substance: ROSUVASTATIN
     Indication: Diabetes mellitus
     Dates: start: 2015
  14. NOVOLIN NOS [Concomitant]
     Active Substance: INSULIN HUMAN
     Indication: Diabetes mellitus
     Dates: start: 2015
  15. TRULICITY [Concomitant]
     Active Substance: DULAGLUTIDE
     Indication: Diabetes mellitus
  16. PRAVASTATIN [Concomitant]
     Active Substance: PRAVASTATIN
     Indication: Diabetes mellitus
     Dates: start: 2014, end: 2015
  17. CHLORTHALIDONE [Concomitant]
     Active Substance: CHLORTHALIDONE
     Indication: Diabetes mellitus
     Dates: start: 2015
  18. ATORVASTATIN [Concomitant]
     Active Substance: ATORVASTATIN
  19. TRAZODONE [Concomitant]
     Active Substance: TRAZODONE HYDROCHLORIDE
  20. OXYCODONE HYDROCHLORIDE [Concomitant]
     Active Substance: OXYCODONE HYDROCHLORIDE
  21. PREDNISOLONE ACETATE [Concomitant]
     Active Substance: PREDNISOLONE ACETATE
  22. TIMOLOL MALEATE [Concomitant]
     Active Substance: TIMOLOL MALEATE
  23. METOLAZONE [Concomitant]
     Active Substance: METOLAZONE
  24. ERGOCALCIFEROL [Concomitant]
     Active Substance: ERGOCALCIFEROL
  25. PAMELOR [Concomitant]
     Active Substance: NORTRIPTYLINE HYDROCHLORIDE
  26. ASPIRIN [Concomitant]
     Active Substance: ASPIRIN
  27. MOTRIN [Concomitant]
     Active Substance: IBUPROFEN
  28. VIAGRA [Concomitant]
     Active Substance: SILDENAFIL CITRATE
  29. LISINOPRIL [Concomitant]
     Active Substance: LISINOPRIL
  30. FLUCONAZOLE [Concomitant]
     Active Substance: FLUCONAZOLE
  31. GLIMEPIRIDE [Concomitant]
     Active Substance: GLIMEPIRIDE
  32. VITAMIN D3 [Concomitant]
     Active Substance: CHOLECALCIFEROL
  33. AMLODIPINE [Concomitant]
     Active Substance: AMLODIPINE BESYLATE
     Indication: Blood pressure measurement
  34. LEVOTHYROXINE [Concomitant]
     Active Substance: LEVOTHYROXINE
     Indication: Thyroid adenoma
  35. HUMALOG [Concomitant]
     Active Substance: INSULIN LISPRO
     Indication: Diabetes mellitus
  36. NEURTOPOLIDINE [Concomitant]
     Indication: Diabetes mellitus
     Dates: start: 2015
  37. AMOXICILLIN-CLAULANATE [Concomitant]
  38. CEFAZOLIN [Concomitant]
     Active Substance: CEFAZOLIN
  39. ONDANSETRON [Concomitant]
     Active Substance: ONDANSETRON
  40. OMNIPAQUE [Concomitant]
     Active Substance: IOHEXOL
  41. CINNAMON\HERBALS [Concomitant]
     Active Substance: CINNAMON\HERBALS
     Dates: start: 2015, end: 2021
  42. SIMVASTATIN [Concomitant]
     Active Substance: SIMVASTATIN
  43. ACTOS [Concomitant]
     Active Substance: PIOGLITAZONE HYDROCHLORIDE
  44. PIOGLITAZONE-METFORMIN [Concomitant]
  45. NIFEIDIPINE [Concomitant]
  46. METHYLPREDNISOLONE [Concomitant]
     Active Substance: METHYLPREDNISOLONE
  47. COLACE [Concomitant]
     Active Substance: DOCUSATE SODIUM
  48. OXYCODONE [Concomitant]
     Active Substance: OXYCODONE
  49. METRONIDAZOLE [Concomitant]
     Active Substance: METRONIDAZOLE
  50. NOVOLOG [Concomitant]
     Active Substance: INSULIN ASPART
  51. LOVENOX [Concomitant]
     Active Substance: ENOXAPARIN SODIUM

REACTIONS (4)
  - Chronic kidney disease [Not Recovered/Not Resolved]
  - Nephrogenic anaemia [Unknown]
  - Acute kidney injury [Unknown]
  - Renal tubular necrosis [Unknown]

NARRATIVE: CASE EVENT DATE: 20151027
